FAERS Safety Report 4511451-9 (Version None)
Quarter: 2004Q4

REPORT INFORMATION
  Report Type: 
  Country: None (occurrence: None)
  Receive Date: 20041129
  Receipt Date: 20040817
  Transmission Date: 20050328
  Serious: No
  Sender: FDA-Public Use
  Company Number: US-BRISTOL-MYERS SQUIBB COMPANY-12674412

PATIENT
  Age: 13 Year
  Sex: Male
  Weight: 41 kg

DRUGS (5)
  1. ABILIFY [Suspect]
     Indication: AUTISM
     Dosage: UNKNOWN INITIATION DOSE.  INTERRUPTED AND RESTARTED ON 16-AUG-2004.  FINAL DOSE 1.25 MG/DAY.
     Route: 048
     Dates: start: 20040101
  2. ABILIFY [Suspect]
     Indication: ANXIETY
     Dosage: UNKNOWN INITIATION DOSE.  INTERRUPTED AND RESTARTED ON 16-AUG-2004.  FINAL DOSE 1.25 MG/DAY.
     Route: 048
     Dates: start: 20040101
  3. ABILIFY [Suspect]
     Indication: DEPRESSION
     Dosage: UNKNOWN INITIATION DOSE.  INTERRUPTED AND RESTARTED ON 16-AUG-2004.  FINAL DOSE 1.25 MG/DAY.
     Route: 048
     Dates: start: 20040101
  4. CELEXA [Concomitant]
  5. STRATTERA [Concomitant]

REACTIONS (1)
  - SEDATION [None]
